FAERS Safety Report 14803074 (Version 1)
Quarter: 2018Q2

REPORT INFORMATION
  Report Type: Report from Study
  Country: BR (occurrence: BR)
  Receive Date: 20180424
  Receipt Date: 20180424
  Transmission Date: 20180711
  Serious: Yes (Death, Other)
  Sender: FDA-Public Use
  Company Number: PHHY2017BR087716

PATIENT
  Sex: Male
  Weight: 80 kg

DRUGS (1)
  1. SANDOSTATIN LAR DEPOT [Suspect]
     Active Substance: OCTREOTIDE ACETATE
     Indication: NEUROENDOCRINE TUMOUR
     Dosage: 40 MG, QMO (EVERY 28 DAYS)
     Route: 030
     Dates: start: 20170102

REACTIONS (9)
  - Multiple organ dysfunction syndrome [Fatal]
  - Pulmonary embolism [Fatal]
  - Injection site pain [Unknown]
  - Neoplasm malignant [Fatal]
  - Malaise [Unknown]
  - Malignant neoplasm progression [Unknown]
  - Injection site coldness [Unknown]
  - Asthenia [Unknown]
  - Needle issue [Unknown]
